FAERS Safety Report 5961300-7 (Version None)
Quarter: 2008Q4

REPORT INFORMATION
  Report Type: 
  Country: None (occurrence: None)
  Receive Date: 20081119
  Receipt Date: 20081104
  Transmission Date: 20090506
  Serious: Yes (Hospitalization)
  Sender: FDA-Public Use
  Company Number: 8039190

PATIENT
  Age: 1 Month
  Weight: 3 kg

DRUGS (1)
  1. KEPPRA [Suspect]
     Dosage: NI TRP
     Route: 064

REACTIONS (4)
  - APNOEA [None]
  - DYSKINESIA [None]
  - MATERNAL DRUGS AFFECTING FOETUS [None]
  - TREMOR [None]
